FAERS Safety Report 4948010-X (Version None)
Quarter: 2006Q1

REPORT INFORMATION
  Report Type: 
  Country: None (occurrence: None)
  Receive Date: 20060320
  Receipt Date: 20051005
  Transmission Date: 20060701
  Serious: Yes (Death, Hospitalization, Other)
  Sender: FDA-Public Use
  Company Number: US-MERCK-0510USA04140

PATIENT
  Age: 90 Year
  Sex: Male

DRUGS (10)
  1. VIOXX [Suspect]
     Indication: OSTEOARTHRITIS
     Route: 048
     Dates: start: 20040404
  2. CLARINEX [Concomitant]
     Route: 048
     Dates: start: 20040414
  3. CLONIDINE [Concomitant]
     Route: 048
     Dates: start: 20010815
  4. HUMIBID [Concomitant]
     Route: 065
  5. NORVASC [Concomitant]
     Route: 048
     Dates: start: 20020913
  6. LABETALOL HYDROCHLORIDE [Concomitant]
     Route: 047
     Dates: start: 20001017
  7. PLAVIX [Concomitant]
     Route: 048
     Dates: start: 20011207
  8. ARICEPT [Concomitant]
     Route: 047
     Dates: start: 20040318
  9. ASPIRIN [Concomitant]
     Route: 065
  10. [THERAPY UNSPECIFIED] [Concomitant]
     Route: 065

REACTIONS (10)
  - ACUTE SINUSITIS [None]
  - ANGINA PECTORIS [None]
  - ARTERIAL OCCLUSIVE DISEASE [None]
  - CERUMEN IMPACTION [None]
  - DEATH [None]
  - DEMENTIA [None]
  - DYSPNOEA [None]
  - MENTAL STATUS CHANGES [None]
  - ORGAN FAILURE [None]
  - OTITIS EXTERNA [None]
